FAERS Safety Report 7746136-9 (Version None)
Quarter: 2011Q3

REPORT INFORMATION
  Report Type: 
  Country: None (occurrence: None)
  Receive Date: 20110913
  Receipt Date: 20110831
  Transmission Date: 20111222
  Serious: Yes (Other)
  Sender: FDA-Public Use
  Company Number: US-ELI_LILLY_AND_COMPANY-US201108001266

PATIENT
  Sex: Female

DRUGS (2)
  1. FORTEO [Suspect]
     Indication: OSTEOPOROSIS
     Dosage: 20 UG, QD
     Dates: start: 20110720, end: 20110720
  2. FORTEO [Suspect]
     Dosage: 20 UG, QD
     Route: 065
     Dates: start: 20110818

REACTIONS (11)
  - BURNING SENSATION [None]
  - TREMOR [None]
  - NAUSEA [None]
  - MALAISE [None]
  - PARAESTHESIA [None]
  - DRUG DOSE OMISSION [None]
  - DYSPEPSIA [None]
  - SUICIDAL IDEATION [None]
  - DIARRHOEA [None]
  - PSYCHIATRIC SYMPTOM [None]
  - TENSION [None]
